FAERS Safety Report 4462110-2 (Version None)
Quarter: 2004Q3

REPORT INFORMATION
  Report Type: 
  Country: None (occurrence: None)
  Receive Date: 20040924
  Receipt Date: 20040924
  Transmission Date: 20050211
  Serious: Yes (Death)
  Sender: FDA-Public Use
  Company Number: None

PATIENT
  Sex: Female
  Weight: 104.3273 kg

DRUGS (27)
  1. AVINZA [Suspect]
     Indication: PAIN
     Dosage: 300 MG QD PO
     Route: 048
     Dates: start: 20040821
  2. AVINZA [Suspect]
     Indication: PAIN
     Dosage: 300 MG QD PO
     Route: 048
     Dates: start: 20040822
  3. TENORMIN [Concomitant]
  4. PLAVIX [Concomitant]
  5. ECOTRIN [Concomitant]
  6. IMDUR [Concomitant]
  7. OSCAL D [Concomitant]
  8. MAG-OX [Concomitant]
  9. FOSAMAX [Concomitant]
  10. FLOTX [Concomitant]
  11. COZAAR [Concomitant]
  12. COLACE [Concomitant]
  13. K-DUR 10 [Concomitant]
  14. LASIX [Concomitant]
  15. ZANTAC [Concomitant]
  16. REMINYL [Concomitant]
  17. MULTI-VITAMIN [Concomitant]
  18. KLONOPIN [Concomitant]
  19. ZYPREXA [Concomitant]
  20. TRAZODONE HCL [Concomitant]
  21. EFFEXOR [Concomitant]
  22. ADVAIR DISKUS 100/50 [Concomitant]
  23. DUONEB [Concomitant]
  24. LORTAB [Concomitant]
  25. VIT C [Concomitant]
  26. ZINC [Concomitant]
  27. DETROL LA [Concomitant]

REACTIONS (4)
  - ANURIA [None]
  - CEREBROVASCULAR ACCIDENT [None]
  - RESPIRATORY RATE INCREASED [None]
  - SOMNOLENCE [None]
